FAERS Safety Report 10255113 (Version 2)
Quarter: 2014Q3

REPORT INFORMATION
  Report Type: Spontaneous
  Country: US (occurrence: US)
  Receive Date: 20140624
  Receipt Date: 20140808
  Transmission Date: 20150326
  Serious: Yes (Hospitalization)
  Sender: FDA-Public Use
  Company Number: US-BAYER-2014-093215

PATIENT
  Age: 28 Year
  Sex: Female
  Weight: 52 kg

DRUGS (3)
  1. MIRENA [Suspect]
     Active Substance: LEVONORGESTREL
     Indication: MENORRHAGIA
  2. MIRENA [Suspect]
     Active Substance: LEVONORGESTREL
     Indication: CONTRACEPTION
     Dosage: 20 MCG/24HR, CONT
     Route: 015
     Dates: start: 20100610, end: 20120608
  3. MORPHINE [Concomitant]
     Active Substance: MORPHINE
     Indication: PAIN

REACTIONS (11)
  - Uterine perforation [None]
  - Emotional distress [None]
  - Injury [None]
  - Scar [None]
  - Depression [None]
  - Anxiety [None]
  - Device failure [None]
  - Sleep disorder [None]
  - Medical device pain [None]
  - Libido decreased [None]
  - Feeling abnormal [None]

NARRATIVE: CASE EVENT DATE: 201204
